FAERS Safety Report 4500336-X (Version None)
Quarter: 2004Q3

REPORT INFORMATION
  Report Type: 
  Country: None (occurrence: None)
  Receive Date: 20040927
  Receipt Date: 20040713
  Transmission Date: 20050211
  Serious: No
  Sender: FDA-Public Use
  Company Number: USA040772535

PATIENT
  Age: 6 Year
  Sex: Male

DRUGS (3)
  1. STRATTERA [Suspect]
     Dosage: 18 MG DAY
     Dates: start: 20040507
  2. DEPAKOTE [Concomitant]
  3. TEGRETOL [Concomitant]

REACTIONS (5)
  - ABDOMINAL PAIN UPPER [None]
  - DECREASED APPETITE [None]
  - DIZZINESS [None]
  - FATIGUE [None]
  - HYPERHIDROSIS [None]
